FAERS Safety Report 12778761 (Version 1)
Quarter: 2016Q3

REPORT INFORMATION
  Report Type: Report from Study
  Country: US (occurrence: US)
  Receive Date: 20160926
  Receipt Date: 20160926
  Transmission Date: 20161109
  Serious: Yes (Other)
  Sender: FDA-Public Use
  Company Number: US-ROCHE-1833637

PATIENT
  Age: 75 Year
  Sex: Female
  Weight: 145.45 kg

DRUGS (9)
  1. DOXORUBICIN HYDROCHLORIDE. [Suspect]
     Active Substance: DOXORUBICIN HYDROCHLORIDE
     Indication: BREAST CANCER
     Dosage: (CYCLE 1, DAY 85), 5-10 MIN ON DAY 1 OF WKS 13, 15, 17 AND 19?LAST DOSE PRIOR TO SAE: 04/MAY/2011
     Route: 042
     Dates: start: 20110209
  2. PACLITAXEL. [Suspect]
     Active Substance: PACLITAXEL
     Indication: BREAST CANCER
     Dosage: CYCLE: 19 WEEKS (CYCLE 1, DAY 78), OVER 1 HR ON DAY 1 OF WKS 1-12?LAST DOSE PRIOR TO SAE: 27/APR/201
     Route: 042
     Dates: start: 20110209
  3. IBUPROFEN. [Concomitant]
     Active Substance: IBUPROFEN
  4. ALBUTEROL SULFATE. [Concomitant]
     Active Substance: ALBUTEROL SULFATE
  5. PERCOCET [Concomitant]
     Active Substance: ACETAMINOPHEN\OXYCODONE HYDROCHLORIDE
  6. PEGFILGRASTIM [Suspect]
     Active Substance: PEGFILGRASTIM
     Indication: BREAST CANCER
     Route: 065
     Dates: start: 20110509
  7. BEVACIZUMAB [Suspect]
     Active Substance: BEVACIZUMAB
     Indication: BREAST CANCER
     Dosage: CYCLE: 19 WEEKS (CYCLE 1, DAY; 85), OVER 30-90 MIN ON DAY 1 OF WKS 1, 3, 5, 7, 9, 11, 13, 15 AND 17
     Route: 042
     Dates: start: 20110209
  8. CYCLOPHOSPHAMIDE. [Suspect]
     Active Substance: CYCLOPHOSPHAMIDE
     Indication: BREAST CANCER
     Dosage: CYCLE: 19 WEEKS (CYCLE 1, DAY 99), OVER 5-30 MIN ON DAY 1 OF WKS 13, 15, 17 AND 19?LAST DOSE PRIOR T
     Route: 042
     Dates: start: 20110209
  9. DEXAMETHASONE. [Suspect]
     Active Substance: DEXAMETHASONE
     Indication: BREAST CANCER
     Route: 065
     Dates: start: 20110427

REACTIONS (3)
  - Onychomadesis [Recovered/Resolved]
  - Pain [Recovered/Resolved]
  - Obesity [Unknown]

NARRATIVE: CASE EVENT DATE: 20110531
